FAERS Safety Report 24447069 (Version 1)
Quarter: 2024Q4

REPORT INFORMATION
  Report Type: Spontaneous
  Country: US (occurrence: US)
  Receive Date: 20241016
  Receipt Date: 20241016
  Transmission Date: 20250114
  Serious: Yes (Hospitalization, Other)
  Sender: FRESENIUS KABI
  Company Number: US-FreseniusKabi-FK202415395

PATIENT
  Age: 70 Year
  Sex: Female

DRUGS (14)
  1. AMIODARONE [Suspect]
     Active Substance: AMIODARONE
     Indication: Atrial flutter
     Dosage: BOLUS
     Route: 040
  2. AMIODARONE [Suspect]
     Active Substance: AMIODARONE
     Indication: Atrioventricular block
     Dosage: FORM OF ADMINISTRATION-INFUSION?150 MG BOLUS FOLLOWED BY 1 MG/MIN INFUSION
  3. METOPROLOL TARTRATE [Concomitant]
     Active Substance: METOPROLOL TARTRATE
     Indication: Atrial flutter
     Route: 042
  4. METOPROLOL TARTRATE [Concomitant]
     Active Substance: METOPROLOL TARTRATE
     Indication: Atrioventricular block
  5. DIGOXIN [Concomitant]
     Active Substance: DIGOXIN
     Indication: Atrial flutter
     Route: 042
  6. DIGOXIN [Concomitant]
     Active Substance: DIGOXIN
     Indication: Atrioventricular block
     Route: 042
  7. LASIX [Concomitant]
     Active Substance: FUROSEMIDE
     Indication: Atrial flutter
     Route: 042
  8. LASIX [Concomitant]
     Active Substance: FUROSEMIDE
     Indication: Atrioventricular block
  9. ATORVASTATIN [Concomitant]
     Active Substance: ATORVASTATIN
     Indication: Atrial flutter
  10. ATORVASTATIN [Concomitant]
     Active Substance: ATORVASTATIN
     Indication: Atrioventricular block
  11. PLAVIX [Concomitant]
     Active Substance: CLOPIDOGREL BISULFATE
     Indication: Atrial flutter
  12. PLAVIX [Concomitant]
     Active Substance: CLOPIDOGREL BISULFATE
     Indication: Atrioventricular block
  13. APIXABAN [Concomitant]
     Active Substance: APIXABAN
     Indication: Atrial flutter
  14. APIXABAN [Concomitant]
     Active Substance: APIXABAN
     Indication: Atrioventricular block

REACTIONS (1)
  - Torsade de pointes [Recovered/Resolved]
